FAERS Safety Report 7502640-X (Version None)
Quarter: 2011Q2

REPORT INFORMATION
  Report Type: 
  Country: None (occurrence: None)
  Receive Date: 20110525
  Receipt Date: 20110512
  Transmission Date: 20111010
  Serious: Yes (Other)
  Sender: FDA-Public Use
  Company Number: PHHY2011US12914

PATIENT
  Sex: Female
  Weight: 72.562 kg

DRUGS (3)
  1. NEXIUM [Concomitant]
     Dosage: UNK UKN, BID
     Route: 048
  2. GILENYA [Suspect]
     Indication: MULTIPLE SCLEROSIS
     Dosage: 0.5 MG, QD
     Route: 048
     Dates: start: 20110203, end: 20110207
  3. VILTAIL [Concomitant]
     Dosage: 25 MG, UNK
     Route: 048

REACTIONS (5)
  - HYPERSENSITIVITY [None]
  - THROAT TIGHTNESS [None]
  - RASH [None]
  - PRURITUS [None]
  - MOUTH ULCERATION [None]
